FAERS Safety Report 18636059 (Version 1)
Quarter: 2020Q4

REPORT INFORMATION
  Report Type: Spontaneous
  Country: KR (occurrence: KR)
  Receive Date: 20201218
  Receipt Date: 20201218
  Transmission Date: 20210114
  Serious: Yes (Other)
  Sender: FDA-Public Use
  Company Number: KR-CELGENEUS-KOR-20201205129

PATIENT
  Age: 79 Year
  Sex: Female
  Weight: 51.9 kg

DRUGS (1)
  1. AZACITIDINE. [Suspect]
     Active Substance: AZACITIDINE
     Indication: B-CELL PROLYMPHOCYTIC LEUKAEMIA
     Dosage: 79.87 MILLIGRAM
     Route: 058
     Dates: start: 20161008, end: 20161009

REACTIONS (2)
  - Depressed level of consciousness [Recovering/Resolving]
  - Somnolence [Recovering/Resolving]

NARRATIVE: CASE EVENT DATE: 20161009
